FAERS Safety Report 5045335-7 (Version None)
Quarter: 2006Q3

REPORT INFORMATION
  Report Type: 
  Country: None (occurrence: None)
  Receive Date: 20060707
  Receipt Date: 20051123
  Transmission Date: 20061208
  Serious: No
  Sender: FDA-Public Use
  Company Number: US-GLAXOSMITHKLINE-A0584155A

PATIENT
  Age: 68 Year
  Sex: Female

DRUGS (4)
  1. LOTRONEX [Suspect]
     Dosage: .5MG PER DAY
     Route: 048
     Dates: start: 20051101
  2. MIACALCIN [Concomitant]
     Route: 045
  3. LIPITOR [Concomitant]
  4. FOSAMAX [Concomitant]

REACTIONS (2)
  - OEDEMA PERIPHERAL [None]
  - RENAL PAIN [None]
